FAERS Safety Report 4686925-0 (Version None)
Quarter: 2005Q2

REPORT INFORMATION
  Report Type: 
  Country: None (occurrence: None)
  Receive Date: 20050608
  Receipt Date: 20050531
  Transmission Date: 20051028
  Serious: Yes (Death)
  Sender: FDA-Public Use
  Company Number: HQ1602207OCT1999

PATIENT
  Age: 90 Year
  Sex: Male

DRUGS (5)
  1. EFFEXOR [Suspect]
     Indication: DEPRESSION
     Dosage: 37.5 MG 1 X PER 1 DAY
     Route: 048
     Dates: start: 19990922, end: 19990922
  2. WARFARIN SODIUM [Concomitant]
  3. ATENOLOL [Concomitant]
  4. FRUSEMIDE (FRUSEMIDE) [Concomitant]
  5. GENTAMICIN [Concomitant]

REACTIONS (3)
  - HYPERTENSION [None]
  - SUBARACHNOID HAEMORRHAGE [None]
  - TACHYCARDIA [None]
